FAERS Safety Report 7251447-X (Version None)
Quarter: 2011Q1

REPORT INFORMATION
  Report Type: 
  Country: None (occurrence: None)
  Receive Date: 20110128
  Receipt Date: 20110117
  Transmission Date: 20110831
  Serious: Yes (Other)
  Sender: FDA-Public Use
  Company Number: PHHY2011US03361

PATIENT

DRUGS (2)
  1. AVAPRO [Suspect]
     Dosage: UNK
  2. DIOVAN [Suspect]
     Dosage: UNK

REACTIONS (5)
  - DISORIENTATION [None]
  - FEELING ABNORMAL [None]
  - SOMNOLENCE [None]
  - CONFUSIONAL STATE [None]
  - AMNESIA [None]
